FAERS Safety Report 9431888 (Version 1)
Quarter: 2013Q3

REPORT INFORMATION
  Report Type: Spontaneous
  Country: DK (occurrence: DK)
  Receive Date: 20130731
  Receipt Date: 20130731
  Transmission Date: 20140515
  Serious: Yes (Other)
  Sender: FDA-Public Use
  Company Number: PHHY2013DK080342

PATIENT
  Age: 71 Year
  Sex: Male

DRUGS (2)
  1. ZOMETA [Suspect]
     Indication: METASTASES TO BONE
     Dosage: 4 MG/100 ML
     Route: 042
     Dates: start: 20060615, end: 20120101
  2. PREDNISOLON [Concomitant]
     Indication: NEOPLASM MALIGNANT
     Dates: start: 20120812

REACTIONS (1)
  - Osteonecrosis of jaw [Not Recovered/Not Resolved]
